FAERS Safety Report 21687610 (Version 3)
Quarter: 2023Q1

REPORT INFORMATION
  Report Type: Spontaneous
  Country: RU (occurrence: RU)
  Receive Date: 20221206
  Receipt Date: 20230308
  Transmission Date: 20230418
  Serious: Yes (Life-Threatening, Other)
  Sender: FDA-Public Use
  Company Number: RU-JNJFOC-20221205440

PATIENT
  Sex: Female
  Weight: 49 kg

DRUGS (19)
  1. SIRTURO [Suspect]
     Active Substance: BEDAQUILINE FUMARATE
     Indication: Tuberculosis
     Dosage: DOSE: 0.2
     Route: 048
     Dates: start: 20221110, end: 20221125
  2. SIRTURO [Suspect]
     Active Substance: BEDAQUILINE FUMARATE
     Route: 048
     Dates: start: 20221214, end: 20230220
  3. LEVOFLOXACIN [Suspect]
     Active Substance: LEVOFLOXACIN
     Indication: Tuberculosis
     Route: 065
     Dates: start: 20221110, end: 20221125
  4. LEVOFLOXACIN [Suspect]
     Active Substance: LEVOFLOXACIN
     Route: 065
     Dates: start: 20221214, end: 20230220
  5. LINEZOLID [Suspect]
     Active Substance: LINEZOLID
     Indication: Tuberculosis
     Route: 065
     Dates: start: 20221110, end: 20221125
  6. LINEZOLID [Suspect]
     Active Substance: LINEZOLID
     Route: 065
     Dates: start: 20221214, end: 20230220
  7. CLOFAZIMINE [Suspect]
     Active Substance: CLOFAZIMINE
     Indication: Tuberculosis
     Route: 065
     Dates: start: 20221110, end: 20221125
  8. CLOFAZIMINE [Suspect]
     Active Substance: CLOFAZIMINE
     Route: 065
     Dates: start: 20221214, end: 20230220
  9. ETHAMSYLATE [Concomitant]
     Active Substance: ETHAMSYLATE
     Indication: Haematochezia
     Route: 065
     Dates: start: 20221123
  10. AMINOCAPROIC ACID [Concomitant]
     Active Substance: AMINOCAPROIC ACID
     Indication: Haematochezia
     Route: 065
     Dates: start: 20221123
  11. SPIRONOLACTONE [Concomitant]
     Active Substance: SPIRONOLACTONE
     Route: 065
     Dates: start: 20221110
  12. MAGNESIUM ASPARTATE\POTASSIUM ASPARTATE [Concomitant]
     Active Substance: MAGNESIUM ASPARTATE\POTASSIUM ASPARTATE
     Dosage: DOSE: 177 MG PLUS 177 MG
     Route: 065
     Dates: start: 20221110
  13. FOLIC ACID [Concomitant]
     Active Substance: FOLIC ACID
     Indication: Anaemia
     Route: 065
     Dates: start: 20221110
  14. BENFOTIAMINE [Concomitant]
     Active Substance: BENFOTIAMINE
     Indication: Polyneuropathy
     Dosage: EVERY OTHER DAY
     Route: 065
     Dates: start: 20221110
  15. FERRIC POLYSACCHARIDE COMPLEX [Concomitant]
     Active Substance: FERRIC POLYSACCHARIDE COMPLEX
     Indication: Anaemia
     Route: 042
     Dates: start: 20221110
  16. ALBUMIN HUMAN [Concomitant]
     Active Substance: ALBUMIN HUMAN
     Route: 042
  17. OMEPRAZOLE [Concomitant]
     Active Substance: OMEPRAZOLE
     Route: 065
  18. BENFOTIAMINE\CYANOCOBALAMIN [Concomitant]
     Active Substance: BENFOTIAMINE\CYANOCOBALAMIN
     Route: 065
  19. MAGNESIUM ASPARTATE\POTASSIUM ASPARTATE [Concomitant]
     Active Substance: MAGNESIUM ASPARTATE\POTASSIUM ASPARTATE
     Route: 065

REACTIONS (4)
  - Anaemia [Recovering/Resolving]
  - Nephropathy toxic [Recovering/Resolving]
  - Transaminases increased [Recovering/Resolving]
  - Diarrhoea [Unknown]

NARRATIVE: CASE EVENT DATE: 20221125
